FAERS Safety Report 12920443 (Version 9)
Quarter: 2017Q3

REPORT INFORMATION
  Report Type: Spontaneous
  Country: US (occurrence: US)
  Receive Date: 20161108
  Receipt Date: 20170814
  Transmission Date: 20171127
  Serious: Yes (Congenital Anomaly, Other)
  Sender: FDA-Public Use
  Company Number: PHEH2016US028534

PATIENT
  Sex: Female

DRUGS (5)
  1. ONDANSETRON HYDROCHLORIDE. [Suspect]
     Active Substance: ONDANSETRON HYDROCHLORIDE
     Indication: FOETAL EXPOSURE DURING PREGNANCY
     Dosage: MOTHER DOSE: 4 MG, Q8H
     Route: 064
  2. ONDANSETRON AUROBINDO [Suspect]
     Active Substance: ONDANSETRON HYDROCHLORIDE
     Indication: FOETAL EXPOSURE DURING PREGNANCY
     Dosage: MOTHER^S DOSE: 04 MG, Q8H (PRN)
     Route: 064
  3. ONDANSETRON HYDROCHLORIDE. [Suspect]
     Active Substance: ONDANSETRON HYDROCHLORIDE
     Indication: FOETAL EXPOSURE DURING PREGNANCY
     Dosage: MOTHER DOSE: 4 MG, PRN
     Route: 064
  4. ONDANSETRONE RANBAXY [Suspect]
     Active Substance: ONDANSETRON HYDROCHLORIDE
     Indication: FOETAL EXPOSURE DURING PREGNANCY
     Dosage: MOTHER^S DOSE: 04 MG, PRN
     Route: 064
  5. ZOFRAN [Suspect]
     Active Substance: ONDANSETRON HYDROCHLORIDE
     Indication: FOETAL EXPOSURE DURING PREGNANCY
     Route: 064

REACTIONS (31)
  - Left-to-right cardiac shunt [Unknown]
  - Sepsis neonatal [Unknown]
  - Cardiac septal hypertrophy [Unknown]
  - Aortic valve incompetence [Unknown]
  - Injury [Unknown]
  - Otitis media [Unknown]
  - Impetigo [Unknown]
  - Hypertrophic cardiomyopathy [Unknown]
  - Neonatal respiratory distress syndrome [Unknown]
  - Jaundice neonatal [Unknown]
  - Decreased appetite [Unknown]
  - Hypoglycaemia [Unknown]
  - Cardiomegaly [Unknown]
  - Atrial septal defect [Unknown]
  - Patent ductus arteriosus [Unknown]
  - Hypoglycaemia neonatal [Unknown]
  - Gastroenteritis viral [Unknown]
  - Foetal exposure during pregnancy [Unknown]
  - Hypoxia [Unknown]
  - Cough [Unknown]
  - Heart disease congenital [Unknown]
  - Left ventricular hypertrophy [Unknown]
  - Cardiac murmur [Unknown]
  - Pyrexia [Unknown]
  - Right ventricular hypertrophy [Unknown]
  - Transient tachypnoea of the newborn [Unknown]
  - Pharyngitis [Unknown]
  - Rhinorrhoea [Unknown]
  - Rash [Unknown]
  - Nasal congestion [Unknown]
  - Fatigue [Unknown]
